FAERS Safety Report 25058463 (Version 2)
Quarter: 2025Q1

REPORT INFORMATION
  Report Type: Spontaneous
  Country: IE (occurrence: IE)
  Receive Date: 20250310
  Receipt Date: 20250320
  Transmission Date: 20250409
  Serious: Yes (Other)
  Sender: PFIZER
  Company Number: None

PATIENT
  Age: 36 Year
  Sex: Female
  Weight: 87 kg

DRUGS (5)
  1. SULFASALAZINE [Suspect]
     Active Substance: SULFASALAZINE
     Indication: Seronegative arthritis
     Dosage: 500 MG, 1X/DAY IN THE AM
     Route: 048
     Dates: start: 20241223, end: 20241229
  2. SULFASALAZINE [Suspect]
     Active Substance: SULFASALAZINE
     Indication: Arthritis
     Dosage: 500 MG, 2X/DAY IN THE AM AND PM
     Route: 048
     Dates: start: 20241230, end: 20250105
  3. SULFASALAZINE [Suspect]
     Active Substance: SULFASALAZINE
     Dosage: 500 MG, 2X/DAY (500MG TABLET AM, 1 X 500MG TABLET PM)
     Route: 048
     Dates: start: 20250106, end: 20250112
  4. SULFASALAZINE [Suspect]
     Active Substance: SULFASALAZINE
     Dosage: 1000 MG, 2X/DAY, FREQ:12 H;2 X 500MG TABLET AM, 2 X 500MG TABLET PM
     Route: 048
     Dates: start: 20250113, end: 20250128
  5. SULFASALAZINE [Suspect]
     Active Substance: SULFASALAZINE
     Route: 048
     Dates: start: 20250204, end: 20250218

REACTIONS (3)
  - Wheezing [Recovering/Resolving]
  - Chest pain [Recovering/Resolving]
  - Liver function test increased [Recovering/Resolving]

NARRATIVE: CASE EVENT DATE: 20250104
